FAERS Safety Report 15322139 (Version 1)
Quarter: 2018Q3

REPORT INFORMATION
  Report Type: Spontaneous
  Country: GE (occurrence: GE)
  Receive Date: 20180827
  Receipt Date: 20180827
  Transmission Date: 20181010
  Serious: Yes (Other)
  Sender: FDA-Public Use
  Company Number: GE-JNJFOC-20180821700

PATIENT
  Age: 30 Year
  Sex: Male
  Weight: 74 kg

DRUGS (11)
  1. BEDAQUILINE [Suspect]
     Active Substance: BEDAQUILINE
     Indication: PULMONARY TUBERCULOSIS
     Route: 048
     Dates: start: 20170425, end: 20171208
  2. CYCLOSERINE. [Suspect]
     Active Substance: CYCLOSERINE
     Indication: PULMONARY TUBERCULOSIS
     Route: 048
     Dates: start: 20170425, end: 20171208
  3. CYCLOSERINE. [Suspect]
     Active Substance: CYCLOSERINE
     Indication: PULMONARY TUBERCULOSIS
     Route: 048
  4. LINEZOLID. [Suspect]
     Active Substance: LINEZOLID
     Indication: PULMONARY TUBERCULOSIS
     Route: 048
     Dates: start: 20170425, end: 20171208
  5. BEDAQUILINE [Suspect]
     Active Substance: BEDAQUILINE
     Indication: PULMONARY TUBERCULOSIS
     Route: 048
  6. IMIPENEM [Suspect]
     Active Substance: IMIPENEM
     Indication: PULMONARY TUBERCULOSIS
     Route: 042
     Dates: start: 20170425, end: 20171208
  7. AMOXICILLIN/CLAVULANIC ACID [Suspect]
     Active Substance: AMOXICILLIN\CLAVULANIC ACID
     Indication: PULMONARY TUBERCULOSIS
     Route: 048
     Dates: start: 20170425, end: 20171208
  8. IMIPENEM [Suspect]
     Active Substance: IMIPENEM
     Indication: PULMONARY TUBERCULOSIS
     Route: 042
  9. AMOXICILLIN/CLAVULANIC ACID [Suspect]
     Active Substance: AMOXICILLIN\CLAVULANIC ACID
     Indication: PULMONARY TUBERCULOSIS
     Route: 048
  10. CAPREOMYCIN [Suspect]
     Active Substance: CAPREOMYCIN
     Indication: PULMONARY TUBERCULOSIS
     Route: 030
     Dates: start: 20171128, end: 20171208
  11. LINEZOLID. [Suspect]
     Active Substance: LINEZOLID
     Indication: PULMONARY TUBERCULOSIS
     Route: 048

REACTIONS (3)
  - Intentional product use issue [Unknown]
  - Hypersensitivity [Recovered/Resolved]
  - Off label use [Unknown]

NARRATIVE: CASE EVENT DATE: 20171207
